FAERS Safety Report 7806527-4 (Version None)
Quarter: 2011Q4

REPORT INFORMATION
  Report Type: 
  Country: None (occurrence: None)
  Receive Date: 20111007
  Receipt Date: 20111007
  Transmission Date: 20120403
  Serious: Yes (Other)
  Sender: FDA-Public Use
  Company Number: None

PATIENT
  Sex: Female

DRUGS (1)
  1. SEPTOCAINE [Suspect]
     Indication: ENDODONTIC PROCEDURE
     Dosage: 1 CARPULE (1.8ML) 1 TIME USE DENTAL 004- MANDIBULAR BLOCK
     Dates: start: 20101201

REACTIONS (4)
  - MYALGIA [None]
  - TRISMUS [None]
  - DYSAESTHESIA [None]
  - POST PROCEDURAL COMPLICATION [None]
